FAERS Safety Report 5763788-3 (Version None)
Quarter: 2008Q2

REPORT INFORMATION
  Report Type: 
  Country: None (occurrence: None)
  Receive Date: 20080606
  Receipt Date: 20080602
  Transmission Date: 20081010
  Serious: No
  Sender: FDA-Public Use
  Company Number: 08H-163-0314356-00

PATIENT
  Age: 78 Year
  Sex: Male
  Weight: 61.0088 kg

DRUGS (1)
  1. HEPARIN SODIUM INJECTION [Suspect]
     Dosage: 9.5 ML/HR, CONTINUOUS, INTRAVENOUS
     Route: 042
     Dates: start: 20080517, end: 20080517

REACTIONS (1)
  - INCORRECT DRUG ADMINISTRATION RATE [None]
